FAERS Safety Report 10195721 (Version 1)
Quarter: 2014Q2

REPORT INFORMATION
  Report Type: Spontaneous
  Country: FR (occurrence: FR)
  Receive Date: 20140527
  Receipt Date: 20140527
  Transmission Date: 20141212
  Serious: Yes (Life-Threatening, Hospitalization)
  Sender: FDA-Public Use
  Company Number: FR-ROCHE-1407244

PATIENT
  Age: 74 Year
  Sex: Female

DRUGS (9)
  1. ROCEPHINE [Suspect]
     Indication: PNEUMOCYSTIS JIROVECII PNEUMONIA
     Route: 065
     Dates: start: 201403
  2. BACTRIM [Suspect]
     Indication: PNEUMOCYSTIS JIROVECII PNEUMONIA
     Route: 065
     Dates: start: 201403
  3. HUMIRA [Suspect]
     Indication: RHEUMATOID ARTHRITIS
     Route: 058
     Dates: end: 20140313
  4. METOJECT [Suspect]
     Indication: RHEUMATOID ARTHRITIS
     Route: 058
  5. METOJECT [Suspect]
     Route: 065
  6. CORTANCYL [Suspect]
     Indication: RHEUMATOID ARTHRITIS
     Route: 048
  7. TAVANIC [Suspect]
     Indication: PNEUMONIA
     Route: 065
     Dates: start: 201403
  8. CORDARONE [Suspect]
     Indication: ARRHYTHMIA SUPRAVENTRICULAR
     Route: 065
     Dates: start: 201403
  9. ACTISKENAN [Concomitant]
     Route: 065

REACTIONS (2)
  - Pancytopenia [Recovered/Resolved]
  - Toxic skin eruption [Recovered/Resolved]
